FAERS Safety Report 12646684 (Version 1)
Quarter: 2016Q3

REPORT INFORMATION
  Report Type: Spontaneous
  Country: ES (occurrence: ES)
  Receive Date: 20160812
  Receipt Date: 20160812
  Transmission Date: 20161109
  Serious: Yes (Other)
  Sender: FDA-Public Use
  Company Number: ES-PAR PHARMACEUTICAL COMPANIES-2016SCPR015720

PATIENT

DRUGS (12)
  1. LAMOTRIGINE. [Suspect]
     Active Substance: LAMOTRIGINE
     Indication: MANIA
     Dosage: UNK UNK, UNKNOWN
     Route: 065
     Dates: start: 201207
  2. LAMOTRIGINE. [Suspect]
     Active Substance: LAMOTRIGINE
     Indication: BIPOLAR DISORDER
     Dosage: 200 MG / DAY
     Route: 065
     Dates: end: 201302
  3. SODIUM VALPROATE [Concomitant]
     Active Substance: VALPROATE SODIUM
     Indication: PRODUCT USED FOR UNKNOWN INDICATION
     Dosage: 500 MG / DAY
     Route: 065
     Dates: start: 201312, end: 2014
  4. SODIUM VALPROATE [Concomitant]
     Active Substance: VALPROATE SODIUM
     Dosage: 700 MG / DAY
     Route: 065
     Dates: start: 201405
  5. QUETIAPINE. [Concomitant]
     Active Substance: QUETIAPINE
     Indication: NERVOUSNESS
     Dosage: 100 MG, HS
     Route: 065
     Dates: start: 201212, end: 2013
  6. QUETIAPINE. [Concomitant]
     Active Substance: QUETIAPINE
     Dosage: 200 MG, HS
     Route: 065
     Dates: start: 201306, end: 201312
  7. ASENAPINE [Concomitant]
     Active Substance: ASENAPINE
     Indication: ILLUSION
  8. LAMOTRIGINE. [Suspect]
     Active Substance: LAMOTRIGINE
     Dosage: 200 MG, / DAY
     Route: 065
     Dates: start: 2013, end: 201405
  9. LAMOTRIGINE. [Suspect]
     Active Substance: LAMOTRIGINE
     Dosage: 100 MG, / DAY
     Route: 065
     Dates: start: 201302, end: 2013
  10. QUETIAPINE. [Concomitant]
     Active Substance: QUETIAPINE
     Indication: INSOMNIA
     Dosage: 100 MG, HS
     Route: 065
     Dates: start: 201208, end: 2012
  11. ASENAPINE [Concomitant]
     Active Substance: ASENAPINE
     Indication: IRRITABILITY
     Dosage: 5 MG / DAY
     Route: 065
     Dates: start: 201208, end: 201212
  12. LORMETAZEPAM [Concomitant]
     Active Substance: LORMETAZEPAM
     Indication: INSOMNIA
     Dosage: 2 MG, HS
     Route: 065
     Dates: start: 201206

REACTIONS (2)
  - Cataplexy [Recovered/Resolved]
  - Product use issue [Unknown]

NARRATIVE: CASE EVENT DATE: 201207
